FAERS Safety Report 23990860 (Version 1)
Quarter: 2024Q2

REPORT INFORMATION
  Report Type: Spontaneous
  Country: FR (occurrence: FR)
  Receive Date: 20240619
  Receipt Date: 20240619
  Transmission Date: 20240716
  Serious: Yes (Hospitalization, Other)
  Sender: FDA-Public Use
  Company Number: FR-SANOFI-01998288

PATIENT
  Age: 74 Year
  Sex: Male
  Weight: 73 kg

DRUGS (1)
  1. DUPIXENT [Suspect]
     Active Substance: DUPILUMAB
     Indication: Asthma
     Dosage: 600 MG
     Dates: start: 20240216, end: 20240403

REACTIONS (15)
  - Fatigue [Unknown]
  - Pyrexia [Unknown]
  - Hypotension [Unknown]
  - Syncope [Unknown]
  - Heart rate decreased [Unknown]
  - Cardiac disorder [Unknown]
  - Vision blurred [Unknown]
  - Dizziness [Unknown]
  - Swelling of eyelid [Unknown]
  - Dry eye [Unknown]
  - Eye disorder [Not Recovered/Not Resolved]
  - Fall [Unknown]
  - Loss of personal independence in daily activities [Unknown]
  - Inappropriate schedule of product administration [Unknown]
  - Extra dose administered [Unknown]

NARRATIVE: CASE EVENT DATE: 20240101
